FAERS Safety Report 9646275 (Version 2)
Quarter: 2014Q2

REPORT INFORMATION
  Report Type: Spontaneous
  Country: DE (occurrence: DE)
  Receive Date: 20131025
  Receipt Date: 20140428
  Transmission Date: 20141212
  Serious: Yes (Other)
  Sender: FDA-Public Use
  Company Number: PHHY2013DE120518

PATIENT
  Sex: Female

DRUGS (4)
  1. SOM230 [Suspect]
     Indication: PITUITARY-DEPENDENT CUSHING^S SYNDROME
     Dosage: 900 UG, DAILY
     Route: 058
     Dates: start: 201110
  2. SOM230 [Suspect]
     Dosage: 300 UG, DAILY
     Route: 058
  3. SOM230 [Suspect]
     Dosage: 300 UG, BID
     Route: 058
  4. SOM230 [Suspect]
     Dosage: 600 UG, BID
     Dates: start: 201112

REACTIONS (4)
  - Loss of consciousness [Unknown]
  - Hypotension [Unknown]
  - Nausea [Unknown]
  - Injection site erythema [Unknown]
